FAERS Safety Report 24067836 (Version 3)
Quarter: 2024Q3

REPORT INFORMATION
  Report Type: Spontaneous
  Country: DE (occurrence: DE)
  Receive Date: 20240710
  Receipt Date: 20240828
  Transmission Date: 20241016
  Serious: Yes (Hospitalization)
  Sender: REGENERON
  Company Number: DE-BAYER-2024A097366

PATIENT
  Age: 49 Year
  Sex: Male

DRUGS (2)
  1. EYLEA HD [Suspect]
     Active Substance: AFLIBERCEPT
     Indication: Diabetic retinal oedema
     Dosage: 8 MG, SOLUTION FOR INJECTION, 114.3 MG/ML
     Route: 031
     Dates: start: 20240312, end: 20240312
  2. EYLEA HD [Suspect]
     Active Substance: AFLIBERCEPT
     Dosage: 8 MG, SOLUTION FOR INJECTION, 114.3 MG/ML
     Route: 031
     Dates: start: 20240702, end: 20240702

REACTIONS (8)
  - Visual acuity reduced [Recovering/Resolving]
  - Headache [Recovering/Resolving]
  - Eye irritation [Recovering/Resolving]
  - Anterior chamber cell [Recovering/Resolving]
  - Vitreal cells [Recovering/Resolving]
  - Eye pain [Recovering/Resolving]
  - Visual impairment [Recovering/Resolving]
  - Vitreous fibrin [Recovering/Resolving]

NARRATIVE: CASE EVENT DATE: 20240702
